FAERS Safety Report 5444528-4 (Version None)
Quarter: 2007Q3

REPORT INFORMATION
  Report Type: 
  Country: None (occurrence: None)
  Receive Date: 20070906
  Receipt Date: 20070823
  Transmission Date: 20080115
  Serious: Yes (Hospitalization)
  Sender: FDA-Public Use
  Company Number: US-AMGEN-US240253

PATIENT
  Sex: Female

DRUGS (4)
  1. PANITUMUMAB [Suspect]
     Indication: COLORECTAL CANCER
     Route: 042
     Dates: start: 20070726
  2. IRINOTECAN HCL [Suspect]
     Route: 065
  3. LEUCOVORIN CALCIUM [Suspect]
     Route: 065
  4. FLUOROURACIL [Suspect]
     Route: 065

REACTIONS (1)
  - ASTHENIA [None]
